FAERS Safety Report 9132766 (Version 2)
Quarter: 2013Q4

REPORT INFORMATION
  Report Type: Spontaneous
  Country: FR (occurrence: FR)
  Receive Date: 20130301
  Receipt Date: 20131210
  Transmission Date: 20140711
  Serious: Yes (Life-Threatening, Hospitalization, Other)
  Sender: FDA-Public Use
  Company Number: PHHY2013FR018873

PATIENT
  Age: 95 Year
  Sex: Female
  Weight: 53 kg

DRUGS (10)
  1. MINI-SINTROM [Suspect]
     Dosage: 1.5 MG, DAILY
     Route: 048
  2. AMOXICILLIN [Interacting]
     Indication: DIARRHOEA
     Dosage: 1 G, (500 MG),TID
     Route: 048
     Dates: start: 20130108, end: 20130113
  3. TIORFAN [Concomitant]
     Indication: DIARRHOEA
     Dosage: 1 DF, TID
  4. AMLOR [Concomitant]
     Dosage: 5 MG, UNK
  5. TRIATEC [Concomitant]
     Dosage: 1.25 MG, UNK
  6. CORVASAL [Concomitant]
     Dosage: 2 MG, UNK
  7. LASILIX [Concomitant]
     Dosage: 500 MG, BID
  8. DIFFU K [Concomitant]
  9. INEXIUM//ESOMEPRAZOLE SODIUM [Concomitant]
     Dosage: 40 MG, UNK
  10. PRAVASTATIN [Concomitant]
     Dosage: 20 MG, UNK

REACTIONS (3)
  - Shock haemorrhagic [Recovered/Resolved]
  - Melaena [Recovered/Resolved]
  - Drug interaction [Unknown]
